FAERS Safety Report 6027904-0 (Version None)
Quarter: 2008Q4

REPORT INFORMATION
  Report Type: 
  Country: None (occurrence: None)
  Receive Date: 20081230
  Receipt Date: 20081217
  Transmission Date: 20090506
  Serious: Yes (Life-Threatening)
  Sender: FDA-Public Use
  Company Number: GXKR2008GB12073

PATIENT
  Age: 80 Year
  Sex: Male

DRUGS (5)
  1. CEFTRIAXONE [Suspect]
     Indication: CELLULITIS
     Dosage: 1 G, UNK, INTRAVENOUS
     Route: 042
     Dates: start: 20081125, end: 20081127
  2. ALLOPURINOL [Concomitant]
  3. AMLODIPINE [Concomitant]
  4. OLMESARTAN MEDOXOMIL [Concomitant]
  5. TAMSULOSIN HCL [Concomitant]

REACTIONS (4)
  - CYANOSIS [None]
  - DIZZINESS [None]
  - DYSPNOEA [None]
  - PARAESTHESIA ORAL [None]
